FAERS Safety Report 12906939 (Version 4)
Quarter: 2017Q2

REPORT INFORMATION
  Report Type: Spontaneous
  Country: IT (occurrence: IT)
  Receive Date: 20161103
  Receipt Date: 20170616
  Transmission Date: 20170830
  Serious: Yes (Hospitalization, Other)
  Sender: FDA-Public Use
  Company Number: IT-TEVA-702789ACC

PATIENT
  Age: 38 Year
  Sex: Female

DRUGS (5)
  1. BISOPROLOL [Suspect]
     Active Substance: BISOPROLOL
     Indication: CARDIAC FAILURE CHRONIC
     Dosage: 5 MILLIGRAM DAILY;
     Route: 048
  2. FUROSEMIDE. [Concomitant]
     Active Substance: FUROSEMIDE
     Indication: PRODUCT USED FOR UNKNOWN INDICATION
     Dosage: 50 MILLIGRAM DAILY;
  3. ENALAPRIL [Concomitant]
     Active Substance: ENALAPRIL
     Indication: PRODUCT USED FOR UNKNOWN INDICATION
     Dosage: 10 MILLIGRAM DAILY;
  4. METOPROLOL. [Suspect]
     Active Substance: METOPROLOL
     Indication: CARDIAC FAILURE CHRONIC
     Dosage: 200 MILLIGRAM DAILY;
     Route: 048
  5. BISOPROLOL [Suspect]
     Active Substance: BISOPROLOL
     Dosage: 2.5 MILLIGRAM DAILY;
     Route: 048

REACTIONS (9)
  - Ejection fraction decreased [Recovering/Resolving]
  - Dyspnoea [Unknown]
  - Condition aggravated [Recovering/Resolving]
  - Maternal exposure during pregnancy [Recovering/Resolving]
  - Ventricular extrasystoles [Recovering/Resolving]
  - Cardiac failure chronic [Recovering/Resolving]
  - Caesarean section [Unknown]
  - Drug ineffective [Recovering/Resolving]
  - Palpitations [Recovering/Resolving]
